FAERS Safety Report 25634819 (Version 1)
Quarter: 2025Q3

REPORT INFORMATION
  Report Type: Spontaneous
  Country: US (occurrence: US)
  Receive Date: 20250801
  Receipt Date: 20250801
  Transmission Date: 20251021
  Serious: No
  Sender: AMGEN
  Company Number: US-AMGEN-USASP2025151769

PATIENT
  Age: 71 Year
  Sex: Male

DRUGS (3)
  1. KYPROLIS [Suspect]
     Active Substance: CARFILZOMIB
     Indication: Plasma cell myeloma
     Route: 065
  2. KYPROLIS [Suspect]
     Active Substance: CARFILZOMIB
     Route: 065
  3. KYPROLIS [Suspect]
     Active Substance: CARFILZOMIB
     Route: 065

REACTIONS (1)
  - Illness [Unknown]

NARRATIVE: CASE EVENT DATE: 20250718
